FAERS Safety Report 4943012-1 (Version None)
Quarter: 2006Q1

REPORT INFORMATION
  Report Type: 
  Country: None (occurrence: None)
  Receive Date: 20060314
  Receipt Date: 20040406
  Transmission Date: 20060701
  Serious: Yes (Life-Threatening)
  Sender: FDA-Public Use
  Company Number: ES-SANOFI-SYNTHELABO-D01200401

PATIENT
  Age: 77 Year
  Sex: Male
  Weight: 74 kg

DRUGS (6)
  1. FONDAPARINUX [Suspect]
     Indication: ACUTE CORONARY SYNDROME
     Dosage: 2.5MG PER DAY
     Route: 058
     Dates: start: 20040404, end: 20040411
  2. ACOVIL [Concomitant]
  3. CARDYL [Concomitant]
  4. CLOPIDOGREL [Concomitant]
  5. METOPROLOL [Concomitant]
  6. NITROGLYCERIN [Concomitant]

REACTIONS (3)
  - CATHETER RELATED COMPLICATION [None]
  - CORONARY ARTERY THROMBOSIS [None]
  - DRUG INEFFECTIVE [None]
